FAERS Safety Report 7993629-5 (Version None)
Quarter: 2011Q4

REPORT INFORMATION
  Report Type: 
  Country: None (occurrence: None)
  Receive Date: 20111219
  Receipt Date: 20111214
  Transmission Date: 20120403
  Serious: Yes (Hospitalization)
  Sender: FDA-Public Use
  Company Number: US-ASTRAZENECA-2011SE75582

PATIENT
  Age: 40 Year
  Sex: Male

DRUGS (3)
  1. ZESTRIL [Suspect]
     Indication: HYPERTENSION
     Route: 048
     Dates: start: 20111202
  2. COREG [Concomitant]
  3. METFORMIN HCL [Concomitant]

REACTIONS (1)
  - NEPHROLITHIASIS [None]
